FAERS Safety Report 10206232 (Version 1)
Quarter: 2014Q2

REPORT INFORMATION
  Report Type: Spontaneous
  Country: GB (occurrence: GB)
  Receive Date: 20140530
  Receipt Date: 20140530
  Transmission Date: 20141212
  Serious: Yes (Death, Hospitalization)
  Sender: FDA-Public Use
  Company Number: GB-RANBAXY-2014RR-81629

PATIENT
  Age: 58 Year
  Sex: Male

DRUGS (5)
  1. DICLOFENAC [Suspect]
     Indication: OSTEOARTHRITIS
     Dosage: 50 MG, TID
     Route: 065
     Dates: start: 200806, end: 200811
  2. DICLOFENAC [Suspect]
     Indication: OSTEOARTHRITIS
     Dosage: 50 MG, ONE TWICE DAILY
     Route: 065
     Dates: start: 200811, end: 201307
  3. NAPROXEN [Suspect]
     Indication: OSTEOARTHRITIS
     Dosage: 500 MG, UNK
     Route: 065
     Dates: start: 201307
  4. CO-DYDRAMOL [Concomitant]
     Indication: PRODUCT USED FOR UNKNOWN INDICATION
     Dosage: 10MG/500 ONE TO TWO TO BE TAKEN FOUR TIMES DAILY
     Route: 065
     Dates: start: 201307
  5. AMITRIPTYLINE [Concomitant]
     Indication: PRODUCT USED FOR UNKNOWN INDICATION
     Dosage: 10 MG/KG, 1-2 AT NIGHT
     Route: 065
     Dates: start: 201307

REACTIONS (2)
  - Gastrointestinal haemorrhage [Fatal]
  - Duodenal ulcer [Not Recovered/Not Resolved]
